FAERS Safety Report 7964763-0 (Version None)
Quarter: 2011Q4

REPORT INFORMATION
  Report Type: 
  Country: None (occurrence: None)
  Receive Date: 20111208
  Receipt Date: 20111206
  Transmission Date: 20120403
  Serious: No
  Sender: FDA-Public Use
  Company Number: US-BAYER-2011-117375

PATIENT
  Age: 52 Year
  Sex: Male

DRUGS (4)
  1. ULTRAVIST 150 [Suspect]
     Indication: DRY MOUTH
  2. HTN MEDICATION [Concomitant]
  3. ULTRAVIST 150 [Suspect]
     Indication: COMPUTERISED TOMOGRAM
     Dosage: OM
     Route: 042
     Dates: start: 20111206, end: 20111206
  4. ULTRAVIST 150 [Suspect]
     Indication: THROAT IRRITATION

REACTIONS (2)
  - PRURITUS [None]
  - URTICARIA [None]
